FAERS Safety Report 20822837 (Version 1)
Quarter: 2022Q2

REPORT INFORMATION
  Report Type: Spontaneous
  Country: US (occurrence: None)
  Receive Date: 20220512
  Receipt Date: 20220512
  Transmission Date: 20220720
  Serious: No
  Sender: FDA-Public Use
  Company Number: 2022A166534

PATIENT
  Sex: Female

DRUGS (1)
  1. PULMICORT FLEXHALER [Suspect]
     Active Substance: BUDESONIDE
     Indication: Chronic obstructive pulmonary disease
     Dosage: 90 MCG, 60 DOSES, 2 INHALATIONS TWICE A DAY
     Route: 055

REACTIONS (5)
  - Eye disorder [Unknown]
  - Off label use [Unknown]
  - Device use issue [Unknown]
  - Device malfunction [Unknown]
  - Device malfunction [Unknown]
